FAERS Safety Report 4615258-3 (Version None)
Quarter: 2005Q1

REPORT INFORMATION
  Report Type: 
  Country: None (occurrence: None)
  Receive Date: 20050317
  Receipt Date: 20050303
  Transmission Date: 20050727
  Serious: Yes (Death)
  Sender: FDA-Public Use
  Company Number: 10468

PATIENT
  Age: 67 Year
  Sex: Male

DRUGS (1)
  1. METHOTREXATE [Suspect]
     Indication: NON-HODGKIN'S LYMPHOMA
     Dosage: IT
     Route: 037

REACTIONS (12)
  - BRAIN OEDEMA [None]
  - CEREBRAL HAEMATOMA [None]
  - CONVULSION [None]
  - DISEASE PROGRESSION [None]
  - GRAND MAL CONVULSION [None]
  - HEADACHE [None]
  - HEMIPARESIS [None]
  - MENINGEAL DISORDER [None]
  - NAUSEA [None]
  - NON-HODGKIN'S LYMPHOMA [None]
  - SOMNOLENCE [None]
  - THERAPY NON-RESPONDER [None]
